FAERS Safety Report 7736822-9 (Version None)
Quarter: 2011Q3

REPORT INFORMATION
  Report Type: 
  Country: None (occurrence: None)
  Receive Date: 20110908
  Receipt Date: 20110908
  Transmission Date: 20111222
  Serious: Yes (Death, Other)
  Sender: FDA-Public Use
  Company Number: None

PATIENT
  Age: 36 Year
  Sex: Female
  Weight: 142.88 kg

DRUGS (1)
  1. XOLAIR [Suspect]
     Indication: ASTHMA
     Dosage: 450MG
     Route: 030
     Dates: start: 20110714, end: 20110908

REACTIONS (2)
  - INTRA-UTERINE DEATH [None]
  - MATERNAL EXPOSURE DURING PREGNANCY [None]
